FAERS Safety Report 20114945 (Version 1)
Quarter: 2021Q4

REPORT INFORMATION
  Report Type: Spontaneous
  Country: US (occurrence: US)
  Receive Date: 20211125
  Receipt Date: 20211125
  Transmission Date: 20220303
  Serious: No
  Sender: FDA-Public Use
  Company Number: US-SANOFI-00860220

PATIENT
  Age: 75 Year
  Sex: Female

DRUGS (1)
  1. LANTUS SOLOSTAR [Suspect]
     Active Substance: INSULIN GLARGINE
     Dosage: 12 UNITS DRUG INTERVAL DOSAGE : AS NEEDED
     Route: 065

REACTIONS (3)
  - Blood glucose abnormal [Unknown]
  - Visual impairment [Unknown]
  - Product storage error [Unknown]
